FAERS Safety Report 20756578 (Version 2)
Quarter: 2022Q2

REPORT INFORMATION
  Report Type: Spontaneous
  Country: FR (occurrence: FR)
  Receive Date: 20220427
  Receipt Date: 20220505
  Transmission Date: 20220721
  Serious: Yes (Death, Hospitalization)
  Sender: FDA-Public Use
  Company Number: FR-MYLANLABS-2022M1030811

PATIENT
  Age: 27 Year
  Sex: Female

DRUGS (4)
  1. EPINEPHRINE [Suspect]
     Active Substance: EPINEPHRINE
     Indication: Cardio-respiratory arrest
     Dosage: 1 MILLIGRAM
     Route: 042
  2. Topalgic [Concomitant]
     Indication: Analgesic therapy
     Dosage: 100 MILLIGRAM, ADMINISTERED OVER 3 MINUTES
     Route: 042
  3. PERFALGAN [Concomitant]
     Active Substance: ACETAMINOPHEN
     Indication: Analgesic therapy
     Dosage: 1 G PARACETAMOL PLACED IN A SOLUTION OF 250 ML OF SODIUM CHLORIDE IN AN INTRAVENOUS...
     Route: 042
  4. SODIUM CHLORIDE [Concomitant]
     Active Substance: SODIUM CHLORIDE
     Indication: Vehicle solution use
     Dosage: 250 MILLILITER,1 G PARACETAMOL PLACED IN A SOLUTION OF 250 ML OF SODIUM CHLORIDE IN.....
     Route: 042

REACTIONS (1)
  - Ventricular fibrillation [Fatal]
